FAERS Safety Report 4621667-9 (Version None)
Quarter: 2005Q1

REPORT INFORMATION
  Report Type: 
  Country: None (occurrence: None)
  Receive Date: 20050329
  Receipt Date: 20050316
  Transmission Date: 20050727
  Serious: Yes (Other)
  Sender: FDA-Public Use
  Company Number: 213171

PATIENT
  Age: 22 Year
  Sex: Male
  Weight: 56.7 kg

DRUGS (10)
  1. AVASTIN [Suspect]
     Indication: COLON CANCER
     Dosage: 290 MG, Q2W, INTRAVENOUS
     Route: 042
     Dates: start: 20041108
  2. LEUCOVORIN CALCIUM [Concomitant]
  3. FLUOROURACIL [Concomitant]
  4. CAMPTOSAR [Concomitant]
  5. OPIUM TINCTURE (OPIUM) [Concomitant]
  6. DILAUDID [Concomitant]
  7. ARANESP [Concomitant]
  8. NEUPOGEN [Concomitant]
  9. KYTRIL [Concomitant]
  10. PROTONIX [Concomitant]

REACTIONS (9)
  - ABDOMINAL PAIN [None]
  - ALANINE AMINOTRANSFERASE INCREASED [None]
  - ASPARTATE AMINOTRANSFERASE INCREASED [None]
  - BLOOD ALKALINE PHOSPHATASE INCREASED [None]
  - BLOOD BILIRUBIN INCREASED [None]
  - INTESTINAL STOMA SITE BLEEDING [None]
  - JAUNDICE [None]
  - LIVER FUNCTION TEST ABNORMAL [None]
  - VOMITING [None]
